FAERS Safety Report 12712378 (Version 2)
Quarter: 2016Q3

REPORT INFORMATION
  Report Type: Spontaneous
  Country: IT (occurrence: IT)
  Receive Date: 20160902
  Receipt Date: 20160915
  Transmission Date: 20161109
  Serious: Yes (Other)
  Sender: FDA-Public Use
  Company Number: IT-PFIZER INC-2016414396

PATIENT
  Age: 56 Year
  Sex: Male

DRUGS (27)
  1. XENICAL [Interacting]
     Active Substance: ORLISTAT
     Indication: OBESITY
     Dosage: 240 MG, DAILY
     Route: 048
     Dates: start: 20160401
  2. OMEPRAZOLE. [Concomitant]
     Active Substance: OMEPRAZOLE
     Dosage: 60 MG, UNK
  3. CIALIS [Concomitant]
     Active Substance: TADALAFIL
     Dosage: 5 MG, UNK
  4. EVION /00110502/ [Concomitant]
     Dosage: 100 MG, UNK
  5. EN [Concomitant]
     Active Substance: DELORAZEPAM
     Indication: PHOBIA
     Dosage: 2 MG, UNK
  6. LARGACTIL /00011901/ [Concomitant]
     Active Substance: CHLORPROMAZINE
     Indication: PHOBIA
     Dosage: 50 MG, UNK
  7. VICTOZA [Concomitant]
     Active Substance: LIRAGLUTIDE
     Indication: DIABETES MELLITUS
     Dosage: 1.8 MG, UNK
     Route: 058
  8. CARNITENE /00718102/ [Concomitant]
     Dosage: 4 G, UNK
  9. PREFOLIC [Concomitant]
     Active Substance: LEUCOVORIN CALCIUM
     Dosage: 15 MG, UNK
  10. UBIMAIOR [Concomitant]
     Dosage: 300 MG, UNK
  11. ESAPENT [Concomitant]
     Dosage: 2 G, UNK
     Route: 048
  12. COAPROVEL [Concomitant]
     Active Substance: HYDROCHLOROTHIAZIDE\IRBESARTAN
     Indication: HYPERTENSION
     Dosage: 300 MG, UNK
     Route: 048
  13. TACHIPIRINA [Concomitant]
     Active Substance: ACETAMINOPHEN
     Dosage: 3 G, UNK
  14. ZYLORIC [Concomitant]
     Active Substance: ALLOPURINOL
     Dosage: 300 MG, UNK
  15. LYRICA [Concomitant]
     Active Substance: PREGABALIN
     Dosage: 450 MG, UNK
  16. NORVASC [Concomitant]
     Active Substance: AMLODIPINE BESYLATE
     Dosage: 10 MG, UNK
  17. COUMADIN [Interacting]
     Active Substance: WARFARIN SODIUM
     Indication: THROMBOSIS PROPHYLAXIS
     Dosage: 5 MG, DAILY
     Route: 048
     Dates: start: 20090101, end: 20160810
  18. CYMBALTA [Concomitant]
     Active Substance: DULOXETINE HYDROCHLORIDE
     Indication: PHOBIA
     Dosage: 60 MG, UNK
  19. VITAMIN E /00110501/ [Concomitant]
     Active Substance: TOCOPHEROL
  20. NICOTINAMIDE [Concomitant]
     Active Substance: NIACINAMIDE
     Dosage: 2 DF, UNK
  21. ACTOS [Concomitant]
     Active Substance: PIOGLITAZONE HYDROCHLORIDE
     Dosage: 30 MG, UNK
     Route: 048
  22. ALPHA LIPOIC ACID [Concomitant]
     Active Substance: .ALPHA.-LIPOIC ACID
  23. ZOLOFT [Suspect]
     Active Substance: SERTRALINE HYDROCHLORIDE
     Indication: DEPRESSION
     Dosage: 150 MG, DAILY
     Route: 048
     Dates: start: 20160501
  24. RIBOFLAVIN PHOSPHATE [Concomitant]
     Active Substance: FLAVIN MONONUCLEOTIDE
     Dosage: 400 MG, UNK
  25. XATRAL [Concomitant]
     Active Substance: ALFUZOSIN
     Dosage: 10 MG, UNK
  26. LASIX [Concomitant]
     Active Substance: FUROSEMIDE
     Dosage: 25 MG, UNK
     Route: 048
  27. ABSORCOL [Concomitant]
     Dosage: 10 MG, UNK

REACTIONS (2)
  - International normalised ratio increased [Recovered/Resolved]
  - Drug interaction [Recovered/Resolved]

NARRATIVE: CASE EVENT DATE: 20160810
